FAERS Safety Report 14893754 (Version 1)
Quarter: 2018Q2

REPORT INFORMATION
  Report Type: Spontaneous
  Country: CL (occurrence: CL)
  Receive Date: 20180514
  Receipt Date: 20180514
  Transmission Date: 20180711
  Serious: Yes (Death)
  Sender: FDA-Public Use
  Company Number: CL-MALLINCKRODT-T201801965

PATIENT
  Age: 3 Day
  Sex: Female

DRUGS (3)
  1. INOMAX [Suspect]
     Active Substance: NITRIC OXIDE
     Indication: PNEUMONIA
     Dosage: 20 PPM
     Route: 065
     Dates: start: 20180422
  2. INOMAX [Suspect]
     Active Substance: NITRIC OXIDE
     Indication: PNEUMONIA
  3. INOMAX [Suspect]
     Active Substance: NITRIC OXIDE
     Indication: SEPSIS
     Dosage: 5 PPM
     Route: 065
     Dates: start: 20180425

REACTIONS (3)
  - Device issue [Unknown]
  - Product use in unapproved indication [Unknown]
  - Oxygen saturation decreased [Fatal]

NARRATIVE: CASE EVENT DATE: 20180425
